FAERS Safety Report 6529893-9 (Version None)
Quarter: 2010Q1

REPORT INFORMATION
  Report Type: 
  Country: None (occurrence: None)
  Receive Date: 20100107
  Receipt Date: 20100106
  Transmission Date: 20100710
  Serious: Yes (Death, Hospitalization)
  Sender: FDA-Public Use
  Company Number: A0838025A

PATIENT
  Age: 84 Year
  Sex: Male

DRUGS (5)
  1. ADVAIR DISKUS 100/50 [Suspect]
     Indication: CHRONIC OBSTRUCTIVE PULMONARY DISEASE
     Dosage: 1PUFF UNKNOWN
     Route: 055
  2. METOPROLOL [Concomitant]
  3. FUROSEMIDE [Concomitant]
  4. CALCITRIOL [Concomitant]
  5. IRON [Concomitant]

REACTIONS (1)
  - RESPIRATORY FAILURE [None]
